FAERS Safety Report 5640232-8 (Version None)
Quarter: 2008Q1

REPORT INFORMATION
  Report Type: 
  Country: None (occurrence: None)
  Receive Date: 20080227
  Receipt Date: 20080215
  Transmission Date: 20080703
  Serious: Yes (Hospitalization)
  Sender: FDA-Public Use
  Company Number: US-BAXTER-2008BH000567

PATIENT
  Age: 76 Year
  Sex: Male

DRUGS (4)
  1. HEPARIN SODIUM [Suspect]
     Indication: THROMBOSIS PROPHYLAXIS
     Route: 042
     Dates: start: 20071114
  2. HEPARIN SODIUM [Suspect]
     Route: 042
     Dates: start: 20071114
  3. HEPARIN SODIUM [Suspect]
     Route: 042
     Dates: start: 20071128
  4. HEPARIN SODIUM [Suspect]
     Route: 042
     Dates: start: 20071128

REACTIONS (2)
  - CHILLS [None]
  - SERRATIA INFECTION [None]
